FAERS Safety Report 8254919-4 (Version None)
Quarter: 2012Q2

REPORT INFORMATION
  Report Type: 
  Country: None (occurrence: None)
  Receive Date: 20120403
  Receipt Date: 20120328
  Transmission Date: 20120825
  Serious: No
  Sender: FDA-Public Use
  Company Number: US-PFIZER INC-2012079620

PATIENT

DRUGS (3)
  1. STREPTOMYCIN [Suspect]
     Dosage: UNK
  2. DARVON COMPOUND [Suspect]
     Dosage: UNK
  3. ERYTHROMYCIN [Suspect]
     Dosage: UNK

REACTIONS (3)
  - RASH [None]
  - URTICARIA [None]
  - DRUG HYPERSENSITIVITY [None]
